FAERS Safety Report 17201930 (Version 1)
Quarter: 2019Q4

REPORT INFORMATION
  Report Type: Spontaneous
  Country: US (occurrence: US)
  Receive Date: 20191203
  Receipt Date: 20191203
  Transmission Date: 20200122
  Serious: Yes (Hospitalization)
  Sender: FDA-Public Use
  Company Number: None

PATIENT
  Age: 16 Year
  Sex: Female

DRUGS (17)
  1. MAG OXIDE [Concomitant]
     Active Substance: MAGNESIUM OXIDE
  2. MYCOPHENOLAT [Concomitant]
     Active Substance: MYCOPHENOLATE MOFETIL
  3. OXYCODONE [Concomitant]
     Active Substance: OXYCODONE
  4. VALGANCICLOV [Concomitant]
  5. XIFAXAN [Concomitant]
     Active Substance: RIFAXIMIN
  6. URSODIOL. [Concomitant]
     Active Substance: URSODIOL
  7. FAMOTIDINE. [Concomitant]
     Active Substance: FAMOTIDINE
  8. PHYTONADIONE. [Concomitant]
     Active Substance: PHYTONADIONE
  9. TADALAFIL 20MG TAB [Suspect]
     Active Substance: TADALAFIL
     Indication: PULMONARY HYPERTENSION
     Dosage: ?          OTHER DOSE:2 TABS;?
     Route: 048
     Dates: start: 20190503
  10. AZATHIOPRINE. [Concomitant]
     Active Substance: AZATHIOPRINE
  11. FUROSEMIDE. [Concomitant]
     Active Substance: FUROSEMIDE
  12. SPIRONOLACT [Concomitant]
     Active Substance: SPIRONOLACTONE
  13. ASPIRIN. [Concomitant]
     Active Substance: ASPIRIN
  14. CLOTRIMAZOLE. [Concomitant]
     Active Substance: CLOTRIMAZOLE
  15. PREDNISONE. [Concomitant]
     Active Substance: PREDNISONE
  16. SMZ/TMP [Concomitant]
     Active Substance: SULFAMETHOXAZOLE\TRIMETHOPRIM
  17. TACROLIMUS. [Concomitant]
     Active Substance: TACROLIMUS

REACTIONS (1)
  - Liver transplant [None]

NARRATIVE: CASE EVENT DATE: 20191121
